FAERS Safety Report 8390541 (Version 2)
Quarter: 2013Q1

REPORT INFORMATION
  Report Type: Spontaneous
  Country: BR (occurrence: BR)
  Receive Date: 20120206
  Receipt Date: 20130131
  Transmission Date: 20140127
  Serious: Yes (Other)
  Sender: FDA-Public Use
  Company Number: BR-AMGEN-BRASP2012006304

PATIENT
  Age: 56 Year
  Sex: Female
  Weight: 63 kg

DRUGS (3)
  1. ENBREL [Suspect]
     Indication: RHEUMATOID ARTHRITIS
     Dosage: 50 MG, ONCE WEEKLY
     Route: 058
     Dates: start: 201109, end: 201109
  2. INSULIN [Concomitant]
     Dosage: 2X/DAY
  3. BUSCOPAN [Concomitant]
     Dosage: PRN

REACTIONS (5)
  - Local swelling [Recovering/Resolving]
  - Gait disturbance [Recovering/Resolving]
  - Flatulence [Unknown]
  - Pain [Recovering/Resolving]
  - Intestinal strangulation [Unknown]
